FAERS Safety Report 10521976 (Version 2)
Quarter: 2014Q4

REPORT INFORMATION
  Report Type: Spontaneous
  Country: JP (occurrence: JP)
  Receive Date: 20141016
  Receipt Date: 20141016
  Transmission Date: 20150528
  Serious: Yes (Hospitalization)
  Sender: FDA-Public Use
  Company Number: JP-SA-2014SA128145

PATIENT
  Age: 49 Year
  Sex: Male
  Weight: 84.9 kg

DRUGS (2)
  1. TAKEPRON OD [Suspect]
     Active Substance: LANSOPRAZOLE
     Route: 048
     Dates: start: 20140603, end: 20140613
  2. PLAVIX [Suspect]
     Active Substance: CLOPIDOGREL BISULFATE
     Indication: PROPHYLAXIS
     Route: 048
     Dates: start: 20140610, end: 20140613

REACTIONS (1)
  - Hepatic function abnormal [Recovered/Resolved]

NARRATIVE: CASE EVENT DATE: 20140612
